FAERS Safety Report 4432864-X (Version None)
Quarter: 2004Q3

REPORT INFORMATION
  Report Type: 
  Country: None (occurrence: None)
  Receive Date: 20040823
  Receipt Date: 20040813
  Transmission Date: 20050211
  Serious: Yes (Death, Hospitalization, Other)
  Sender: FDA-Public Use
  Company Number: 2004-07-0083

PATIENT
  Age: 59 Year
  Sex: Female
  Weight: 78 kg

DRUGS (9)
  1. VIRAFERONPEG [Suspect]
     Indication: HEPATITIS C
     Dosage: 120 MCG SUBCUTANEOUS
     Route: 058
     Dates: start: 20040402, end: 20040625
  2. REBETOL [Suspect]
     Indication: HEPATITIS C
     Dosage: 1000 MG ORAL
     Route: 048
     Dates: start: 20040402, end: 20040627
  3. THYROXINE [Concomitant]
  4. AMOXICILLIN AND CLAVULANATE POTASSIUM [Concomitant]
  5. HYDROCORTISONE [Concomitant]
  6. ANTIBIOTIC [Concomitant]
  7. LEVOTHYROXINE SODIUM [Concomitant]
  8. URSODEOXYCHOLIC ACID [Concomitant]
  9. ACETAMINOPHEN [Concomitant]

REACTIONS (27)
  - ABDOMINAL PAIN [None]
  - ARTHRALGIA [None]
  - AUTOIMMUNE DISORDER [None]
  - BLOOD GLUCOSE ABNORMAL [None]
  - CEREBRAL INFARCTION [None]
  - CORONARY ARTERY ATHEROSCLEROSIS [None]
  - DIABETES MELLITUS [None]
  - DIARRHOEA [None]
  - EMBOLISM [None]
  - ENDOCARDITIS [None]
  - FATIGUE [None]
  - GENERAL PHYSICAL HEALTH DETERIORATION [None]
  - HAEMOGLOBIN DECREASED [None]
  - HEPATIC FUNCTION ABNORMAL [None]
  - INFECTION [None]
  - LUNG INFILTRATION [None]
  - MITRAL VALVE DISEASE [None]
  - MYALGIA [None]
  - OEDEMA [None]
  - ORAL CANDIDIASIS [None]
  - PLATELET COUNT DECREASED [None]
  - PULMONARY HAEMORRHAGE [None]
  - RENAL IMPAIRMENT [None]
  - RESPIRATORY FAILURE [None]
  - URINARY TRACT INFECTION [None]
  - VAGINAL CANDIDIASIS [None]
  - VOMITING [None]
